FAERS Safety Report 8565301-4 (Version None)
Quarter: 2012Q3

REPORT INFORMATION
  Report Type: 
  Country: None (occurrence: None)
  Receive Date: 20120803
  Receipt Date: 20120726
  Transmission Date: 20120928
  Serious: Yes (Other)
  Sender: FDA-Public Use
  Company Number: JP-VERTEX PHARMACEUTICALS INC.-AE-2012-010237

PATIENT
  Age: 54 Year
  Sex: Male

DRUGS (6)
  1. METFORMIN HCL [Concomitant]
     Route: 048
  2. TELAVIC (TELAPREVIR) [Suspect]
     Indication: HEPATITIS C
     Route: 048
     Dates: start: 20120704, end: 20120706
  3. REBETOL [Concomitant]
     Indication: HEPATITIS C
     Route: 048
     Dates: start: 20120704
  4. VOLTAREN-XR [Concomitant]
     Indication: ADVERSE EVENT
     Route: 048
     Dates: start: 20120704
  5. NOVORAPID 30 MIX [Concomitant]
  6. PEGINTERFERON ALFA-2B [Concomitant]
     Indication: HEPATITIS C
     Route: 058
     Dates: start: 20120704

REACTIONS (2)
  - RENAL DISORDER [None]
  - ERYTHEMA [None]
